FAERS Safety Report 5880115-1 (Version None)
Quarter: 2008Q3

REPORT INFORMATION
  Report Type: 
  Country: None (occurrence: None)
  Receive Date: 20080911
  Receipt Date: 20080911
  Transmission Date: 20090109
  Serious: No
  Sender: FDA-Public Use
  Company Number: None

PATIENT
  Sex: Female
  Weight: 71.2147 kg

DRUGS (5)
  1. LAMOTRIGINE [Suspect]
     Indication: BIPOLAR II DISORDER
     Dosage: 100 MG  ONE QD  PO
     Route: 048
     Dates: start: 20080820, end: 20080910
  2. ABILIFY [Concomitant]
  3. ADDERALL XR 30 [Concomitant]
  4. LEVOTHROID [Concomitant]
  5. ESKALITH [Concomitant]

REACTIONS (4)
  - ANXIETY [None]
  - PANIC ATTACK [None]
  - PHARMACEUTICAL PRODUCT COMPLAINT [None]
  - THINKING ABNORMAL [None]
